FAERS Safety Report 5569551-0 (Version None)
Quarter: 2007Q4

REPORT INFORMATION
  Report Type: 
  Country: None (occurrence: None)
  Receive Date: 20071220
  Receipt Date: 20071211
  Transmission Date: 20080405
  Serious: Yes (Other)
  Sender: FDA-Public Use
  Company Number: MW-GILEAD-2007-0014631

PATIENT
  Sex: Female

DRUGS (11)
  1. EMTRICITABINE [Suspect]
     Indication: HIV INFECTION
     Route: 065
     Dates: start: 20060823
  2. ATAZANAVIR [Suspect]
     Indication: HIV INFECTION
     Route: 065
     Dates: start: 20060823
  3. DDI-EC [Suspect]
     Indication: HIV INFECTION
     Route: 065
     Dates: start: 20060823
  4. GENTIAN VIOLET [Concomitant]
     Route: 065
     Dates: start: 20070223, end: 20070320
  5. AZITHROMYCIN [Concomitant]
     Route: 065
     Dates: start: 20070306, end: 20070312
  6. ZINC PASTE [Concomitant]
     Route: 065
     Dates: start: 20070320, end: 20070701
  7. CALAMINE LOTION [Concomitant]
     Route: 065
     Dates: start: 20070320, end: 20070701
  8. FANSIDAR [Concomitant]
     Route: 065
     Dates: start: 20070417, end: 20070417
  9. CLOXACILLIN SODIUM [Concomitant]
     Route: 065
     Dates: start: 20070430, end: 20070507
  10. ACETAMINOPHEN [Concomitant]
     Route: 065
     Dates: start: 20070417, end: 20070421
  11. POTASSIUM PERMANGAN [Concomitant]
     Route: 065
     Dates: start: 20070320, end: 20070701

REACTIONS (1)
  - ABORTION SPONTANEOUS [None]
